FAERS Safety Report 21960723 (Version 1)
Quarter: 2023Q1

REPORT INFORMATION
  Report Type: Report from Study
  Country: US (occurrence: US)
  Receive Date: 20230207
  Receipt Date: 20230207
  Transmission Date: 20230418
  Serious: Yes (Other)
  Sender: FDA-Public Use
  Company Number: US-ABBVIE-4295514

PATIENT
  Sex: Female

DRUGS (1)
  1. SKYRIZI [Suspect]
     Active Substance: RISANKIZUMAB-RZAA
     Indication: Crohn^s disease
     Route: 058

REACTIONS (14)
  - Hysterectomy [Unknown]
  - Fatigue [Unknown]
  - Infusion site urticaria [Unknown]
  - Post procedural complication [Unknown]
  - Urinary tract infection [Unknown]
  - Dyschezia [Unknown]
  - Splenic cyst [Unknown]
  - Hepatic cyst [Unknown]
  - Pelvic cyst [Unknown]
  - Haemoglobin decreased [Unknown]
  - Haematochezia [Unknown]
  - Splenic lesion [Unknown]
  - Diarrhoea [Unknown]
  - Anal fissure [Unknown]
